FAERS Safety Report 17079816 (Version 1)
Quarter: 2019Q4

REPORT INFORMATION
  Report Type: Spontaneous
  Country: US (occurrence: US)
  Receive Date: 20191127
  Receipt Date: 20191127
  Transmission Date: 20200122
  Serious: Yes (Other)
  Sender: FDA-Public Use
  Company Number: US-AUROBINDO-AUR-APL-2019-073718

PATIENT
  Age: 66 Year
  Sex: Male

DRUGS (1)
  1. CLINDAMYCIN 300 MG [Suspect]
     Active Substance: CLINDAMYCIN PHOSPHATE
     Indication: PRODUCT USED FOR UNKNOWN INDICATION
     Dosage: UNK (PILL)
     Route: 048

REACTIONS (6)
  - Laryngitis [Recovering/Resolving]
  - Oesophagitis [Unknown]
  - Oesophagitis chemical [Recovering/Resolving]
  - Epiglottis ulcer [Recovering/Resolving]
  - Chemical burn of respiratory tract [Recovering/Resolving]
  - Odynophagia [Recovering/Resolving]
